FAERS Safety Report 7372106-9 (Version None)
Quarter: 2011Q1

REPORT INFORMATION
  Report Type: 
  Country: None (occurrence: None)
  Receive Date: 20110324
  Receipt Date: 20110317
  Transmission Date: 20110831
  Serious: Yes (Death)
  Sender: FDA-Public Use
  Company Number: US-ROCHE-767005

PATIENT
  Age: 57 Year
  Sex: Male

DRUGS (7)
  1. NAPROXEN [Suspect]
     Dosage: ONGOING STATUS UNKNOWN AT THE TIME OF DEATH, ROUTE: INGESTION
     Route: 048
  2. FENOFIBRATE [Suspect]
     Dosage: ONGOING STATUS UNKNOWN AT THE TIME OF DEATH, ROUTE: INGESTION
     Route: 048
  3. CHOLESTYRAMINE [Suspect]
     Dosage: ROUTE: INGESTION
     Route: 048
  4. COLCHICINE [Suspect]
     Dosage: ONGOING STATUS UNKNOWN AT THE TIME OF DEATH, ROUTE: INGESTION
     Route: 048
  5. PARACETAMOL [Suspect]
     Dosage: ONGOING STATUS UNKNOWN AT THE TIME OF DEATH, ROUTE: INGESTION
     Route: 048
  6. IBUPROFEN [Suspect]
     Dosage: ONGOING STATUS UNKNOWN AT THE TIME OF DEATH, ROUTE: INGESTION
     Route: 048
  7. ETHANOL [Suspect]
     Dosage: ROUTE: INGESTION
     Route: 048

REACTIONS (2)
  - TOXICITY TO VARIOUS AGENTS [None]
  - COMPLETED SUICIDE [None]
